FAERS Safety Report 12205126 (Version 1)
Quarter: 2016Q1

REPORT INFORMATION
  Report Type: Report from Study
  Country: PR (occurrence: PR)
  Receive Date: 20160323
  Receipt Date: 20160323
  Transmission Date: 20160526
  Serious: Yes (Hospitalization)
  Sender: FDA-Public Use
  Company Number: PR-JNJFOC-20160305890

PATIENT
  Sex: Female

DRUGS (1)
  1. IMBRUVICA [Suspect]
     Active Substance: IBRUTINIB
     Indication: LYMPHOMA
     Route: 048
     Dates: start: 201511

REACTIONS (6)
  - Stomatitis [Recovering/Resolving]
  - Mouth haemorrhage [Unknown]
  - Abdominal pain upper [Unknown]
  - Headache [Unknown]
  - Off label use [Unknown]
  - Intestinal haemorrhage [Unknown]

NARRATIVE: CASE EVENT DATE: 2016
